FAERS Safety Report 9385756 (Version 1)
Quarter: 2013Q3

REPORT INFORMATION
  Report Type: Spontaneous
  Country: AU (occurrence: AU)
  Receive Date: 20130705
  Receipt Date: 20130705
  Transmission Date: 20140515
  Serious: Yes (Other)
  Sender: FDA-Public Use
  Company Number: PHHY2013AU067979

PATIENT
  Sex: Female

DRUGS (2)
  1. DEFERASIROX [Suspect]
     Indication: IRON OVERLOAD
  2. PREDNISONE [Suspect]

REACTIONS (2)
  - Hepatic function abnormal [Unknown]
  - Rash [Unknown]
